FAERS Safety Report 6994598-7 (Version None)
Quarter: 2010Q3

REPORT INFORMATION
  Report Type: 
  Country: None (occurrence: None)
  Receive Date: 20100916
  Receipt Date: 20100916
  Transmission Date: 20110219
  Serious: Yes (Hospitalization)
  Sender: FDA-Public Use
  Company Number: None

PATIENT
  Sex: Female
  Weight: 60.5 kg

DRUGS (9)
  1. METHYLPREDNISOLONE [Suspect]
     Indication: RESPIRATORY DISTRESS
     Dosage: 125 MG ONCE IV PUSH
     Route: 042
     Dates: start: 20100108
  2. GABAPENTIN [Concomitant]
  3. FLUTICASONE/ SALMETAROL [Concomitant]
  4. ALBUTEROL [Concomitant]
  5. IPRATROPIUM BROMIDE [Concomitant]
  6. VITAMIN D [Concomitant]
  7. MULTI-VITAMIN [Concomitant]
  8. FISH OIL [Concomitant]
  9. HYDROCHLOROTHIAZIDE [Concomitant]

REACTIONS (7)
  - DRUG HYPERSENSITIVITY [None]
  - DYSPNOEA [None]
  - EPIGLOTTITIS [None]
  - HYPOXIA [None]
  - NO THERAPEUTIC RESPONSE [None]
  - TACHYCARDIA [None]
  - URTICARIA [None]
